FAERS Safety Report 7510712-9 (Version None)
Quarter: 2011Q2

REPORT INFORMATION
  Report Type: 
  Country: None (occurrence: None)
  Receive Date: 20110530
  Receipt Date: 20110523
  Transmission Date: 20111010
  Serious: Yes (Other)
  Sender: FDA-Public Use
  Company Number: FR-SANOFI-AVENTIS-2011SA031860

PATIENT
  Age: 60 Year
  Sex: Male

DRUGS (2)
  1. ALFUZOSIN HYDROCHLORIDE [Suspect]
     Indication: BENIGN PROSTATIC HYPERPLASIA
     Route: 048
     Dates: start: 20100101, end: 20110501
  2. ISOPTIN [Concomitant]
     Indication: CARDIOSPASM
     Dates: start: 20110101

REACTIONS (1)
  - TRANSAMINASES INCREASED [None]
